FAERS Safety Report 14530724 (Version 1)
Quarter: 2018Q1

REPORT INFORMATION
  Report Type: Spontaneous
  Country: US (occurrence: US)
  Receive Date: 20180213
  Receipt Date: 20180213
  Transmission Date: 20180509
  Serious: Yes (Hospitalization)
  Sender: FDA-Public Use
  Company Number: None

PATIENT
  Age: 54 Year
  Sex: Female

DRUGS (25)
  1. POT CL MCRO [Concomitant]
  2. AMITIZA [Concomitant]
     Active Substance: LUBIPROSTONE
  3. XIFAXAN [Concomitant]
     Active Substance: RIFAXIMIN
  4. SANDIMMUNE [Suspect]
     Active Substance: CYCLOSPORINE
     Indication: LIVER TRANSPLANT
     Route: 048
     Dates: start: 20160603
  5. CLONAZEPAM. [Concomitant]
     Active Substance: CLONAZEPAM
  6. LANTUS [Concomitant]
     Active Substance: INSULIN GLARGINE
  7. NAMZARIC [Concomitant]
     Active Substance: DONEPEZIL HYDROCHLORIDE\MEMANTINE HYDROCHLORIDE
  8. VALACYCLOVIR [Concomitant]
     Active Substance: VALACYCLOVIR HYDROCHLORIDE
  9. NOVOLOG [Concomitant]
     Active Substance: INSULIN ASPART
  10. VALACYCLOVIR [Concomitant]
     Active Substance: VALACYCLOVIR HYDROCHLORIDE
  11. PROPRANOLOL [Concomitant]
     Active Substance: PROPRANOLOL HYDROCHLORIDE
  12. MIRTAZAPINE. [Concomitant]
     Active Substance: MIRTAZAPINE
  13. QUETIAPINE. [Concomitant]
     Active Substance: QUETIAPINE
  14. CYCLOBENZAPR [Concomitant]
     Active Substance: CYCLOBENZAPRINE
  15. LORAZEPAM. [Concomitant]
     Active Substance: LORAZEPAM
  16. NYSTATIN. [Concomitant]
     Active Substance: NYSTATIN
  17. TOPIRAMATE. [Concomitant]
     Active Substance: TOPIRAMATE
  18. BUMETANIDE. [Concomitant]
     Active Substance: BUMETANIDE
  19. RAPAMUNE [Concomitant]
     Active Substance: SIROLIMUS
     Route: 048
     Dates: start: 20160603
  20. CYMBALTA [Concomitant]
     Active Substance: DULOXETINE HYDROCHLORIDE
  21. LIDOCAINE. [Concomitant]
     Active Substance: LIDOCAINE
  22. AMOX [Concomitant]
     Active Substance: UNSPECIFIED INGREDIENT
  23. PRAVASTATIN. [Concomitant]
     Active Substance: PRAVASTATIN
  24. SYNTHROID [Concomitant]
     Active Substance: LEVOTHYROXINE SODIUM
  25. LEVOTHYROXIN [Concomitant]
     Active Substance: LEVOTHYROXINE

REACTIONS (1)
  - Pain [None]
